FAERS Safety Report 9624103 (Version 3)
Quarter: 2016Q4

REPORT INFORMATION
  Report Type: Report from Study
  Country: GB (occurrence: GB)
  Receive Date: 20131015
  Receipt Date: 20161011
  Transmission Date: 20170207
  Serious: Yes (Hospitalization, Disabling)
  Sender: FDA-Public Use
  Company Number: GB-ROCHE-1288821

PATIENT
  Age: 66 Year
  Sex: Male
  Weight: 99 kg

DRUGS (12)
  1. FUROSEMIDE. [Concomitant]
     Active Substance: FUROSEMIDE
  2. FLUOXETIN [Concomitant]
     Active Substance: FLUOXETINE HYDROCHLORIDE
  3. PERINDOPRIL [Concomitant]
     Active Substance: PERINDOPRIL
  4. TEMAZEPAM. [Concomitant]
     Active Substance: TEMAZEPAM
  5. GABAPENTIN. [Concomitant]
     Active Substance: GABAPENTIN
  6. FERROUS FUMARATE [Concomitant]
     Active Substance: FERROUS FUMARATE
  7. PREDNISONE. [Concomitant]
     Active Substance: PREDNISONE
     Route: 065
  8. SULPHASALAZINE [Concomitant]
     Active Substance: SULFASALAZINE
     Route: 065
  9. ASPIRIN. [Concomitant]
     Active Substance: ASPIRIN
  10. BACITRACIN. [Concomitant]
     Active Substance: BACITRACIN
  11. RITUXIMAB [Suspect]
     Active Substance: RITUXIMAB
     Indication: RHEUMATOID ARTHRITIS
     Dosage: LAST DOSE PRIOR TO SAE: 17/JAN/2013
     Route: 042
     Dates: start: 20100902
  12. ESOMEPRAZOLE [Concomitant]
     Active Substance: ESOMEPRAZOLE

REACTIONS (6)
  - Spinal column stenosis [Not Recovered/Not Resolved]
  - Chronic obstructive pulmonary disease [Recovered/Resolved]
  - Arthralgia [Not Recovered/Not Resolved]
  - Non-cardiac chest pain [Unknown]
  - Infective exacerbation of chronic obstructive airways disease [Unknown]
  - Respiratory failure [Unknown]

NARRATIVE: CASE EVENT DATE: 20151111
